FAERS Safety Report 6449949-9 (Version None)
Quarter: 2009Q4

REPORT INFORMATION
  Report Type: 
  Country: None (occurrence: None)
  Receive Date: 20091120
  Receipt Date: 20091120
  Transmission Date: 20100525
  Serious: No
  Sender: FDA-Public Use
  Company Number: None

PATIENT
  Sex: Male
  Weight: 67.4045 kg

DRUGS (2)
  1. FLECTOR [Suspect]
     Indication: NECK PAIN
     Dates: start: 20091111, end: 20091111
  2. FLECTOR [Suspect]
     Indication: OSTEOARTHRITIS
     Dates: start: 20091111, end: 20091111

REACTIONS (2)
  - CEREBELLAR INFARCTION [None]
  - DIZZINESS [None]
